FAERS Safety Report 7152898-4 (Version None)
Quarter: 2011Q1

REPORT INFORMATION
  Report Type: 
  Country: None (occurrence: None)
  Receive Date: 20101130
  Receipt Date: 20101122
  Transmission Date: 20110831
  Serious: Yes (Other)
  Sender: FDA-Public Use
  Company Number: ZYD-10-AE-285

PATIENT
  Age: 48 Year
  Sex: Female

DRUGS (6)
  1. ATIVAN [Concomitant]
  2. NEXIUM [Concomitant]
  3. LOVASTATIN [Concomitant]
  4. VITAMIN D [Concomitant]
  5. ANASTROZOLE [Suspect]
     Indication: ANTIANDROGEN THERAPY
     Dosage: 1MG - DAILY - ORAL
     Route: 048
     Dates: start: 20100914
  6. PAXIL [Concomitant]

REACTIONS (5)
  - LOSS OF CONSCIOUSNESS [None]
  - DIARRHOEA [None]
  - ABDOMINAL DISCOMFORT [None]
  - GASTROINTESTINAL PAIN [None]
  - HYPERHIDROSIS [None]
